FAERS Safety Report 10735235 (Version 8)
Quarter: 2015Q3

REPORT INFORMATION
  Report Type: Spontaneous
  Country: US (occurrence: US)
  Receive Date: 20150125
  Receipt Date: 20150918
  Transmission Date: 20151125
  Serious: Yes (Congenital Anomaly, Other)
  Sender: FDA-Public Use
  Company Number: US-APOTEX-2015AP005400

PATIENT

DRUGS (1)
  1. PAXIL [Suspect]
     Active Substance: PAROXETINE HYDROCHLORIDE
     Indication: DEPRESSION
     Dosage: UNK
     Route: 064
     Dates: end: 2002

REACTIONS (15)
  - Bicuspid aortic valve [Unknown]
  - Colour blindness [Unknown]
  - Aortic dilatation [Unknown]
  - Hypertrophic cardiomyopathy [Unknown]
  - Atrioventricular block first degree [Unknown]
  - Tricuspid valve incompetence [Unknown]
  - Congenital mitral valve incompetence [Unknown]
  - Attention deficit/hyperactivity disorder [Unknown]
  - Language disorder [Unknown]
  - Congenital aortic stenosis [Unknown]
  - Congenital aortic valve incompetence [Unknown]
  - Cardiac failure [Unknown]
  - Pulmonary valve incompetence [Unknown]
  - Cardiac murmur [Unknown]
  - Foetal exposure during pregnancy [Unknown]

NARRATIVE: CASE EVENT DATE: 20020119
